FAERS Safety Report 5272607-3 (Version None)
Quarter: 2007Q1

REPORT INFORMATION
  Report Type: 
  Country: None (occurrence: None)
  Receive Date: 20070320
  Receipt Date: 20070320
  Transmission Date: 20070707
  Serious: Yes (Life-Threatening)
  Sender: FDA-Public Use
  Company Number: None

PATIENT
  Age: 60 Year
  Sex: Female
  Weight: 49.8957 kg

DRUGS (5)
  1. NEURONTIN [Suspect]
     Indication: PAIN MANAGEMENT
     Dosage: 100MGS BID PO
     Route: 048
     Dates: start: 20061118, end: 20061127
  2. DOXIL [Concomitant]
  3. CELEXA [Concomitant]
  4. CALCIUM SUPPLEMENTS [Concomitant]
  5. MS CONTIN [Concomitant]

REACTIONS (4)
  - CRYING [None]
  - DEPRESSION [None]
  - FEELING ABNORMAL [None]
  - SUICIDAL IDEATION [None]
